FAERS Safety Report 5609115-3 (Version None)
Quarter: 2008Q1

REPORT INFORMATION
  Report Type: 
  Country: None (occurrence: None)
  Receive Date: 20080130
  Receipt Date: 20080130
  Transmission Date: 20080703
  Serious: Yes (Hospitalization)
  Sender: FDA-Public Use
  Company Number: None

PATIENT
  Sex: Female
  Weight: 58.9676 kg

DRUGS (1)
  1. BOTOX [Suspect]
     Indication: SKIN COSMETIC PROCEDURE
     Dates: start: 20070925

REACTIONS (7)
  - DIZZINESS [None]
  - FLUSHING [None]
  - INJECTION SITE HAEMORRHAGE [None]
  - MONOPLEGIA [None]
  - MUSCLE DISORDER [None]
  - TACHYCARDIA [None]
  - THERAPEUTIC AGENT TOXICITY [None]
